FAERS Safety Report 5828959-6 (Version None)
Quarter: 2008Q3

REPORT INFORMATION
  Report Type: 
  Country: None (occurrence: None)
  Receive Date: 20080731
  Receipt Date: 20080718
  Transmission Date: 20090109
  Serious: Yes (Other)
  Sender: FDA-Public Use
  Company Number: PHHY2008DE14563

PATIENT

DRUGS (5)
  1. FEMARA [Suspect]
     Indication: BREAST CANCER
  2. THYRONAJOD [Concomitant]
     Dosage: 75 MG, QD
     Route: 048
  3. GLIMEPIRIDE [Concomitant]
     Dosage: 2 MG, QD
  4. AMLODIPINE MALEATE [Concomitant]
     Dosage: 10 MG, QD
  5. ZOLADEX [Concomitant]

REACTIONS (8)
  - BLOOD CHOLESTEROL INCREASED [None]
  - BLOOD GLUCOSE INCREASED [None]
  - CHEILITIS GRANULOMATOSA [None]
  - GRANULOMA ANNULARE [None]
  - HEPATIC ENZYME INCREASED [None]
  - LIP SWELLING [None]
  - MELKERSSON-ROSENTHAL SYNDROME [None]
  - RASH [None]
